FAERS Safety Report 4722685-2 (Version None)
Quarter: 2005Q3

REPORT INFORMATION
  Report Type: 
  Country: None (occurrence: None)
  Receive Date: 20050720
  Receipt Date: 20050708
  Transmission Date: 20060218
  Serious: Yes (Death, Other)
  Sender: FDA-Public Use
  Company Number: 2005078964

PATIENT
  Age: 87 Year
  Sex: Male

DRUGS (6)
  1. CELEBREX [Suspect]
     Indication: ARTHRITIS
     Dosage: 200 MG (200 MG, 1 IN 1 D), ORAL
     Route: 048
     Dates: end: 20020701
  2. LASIX [Concomitant]
  3. XANAX [Concomitant]
  4. ZANTAC [Concomitant]
  5. ANTIVERT ^PFIZER^ (MECLOZINE HYDROCHLORIDE) [Concomitant]
  6. LANOXINE (DIGOXIN) [Concomitant]

REACTIONS (7)
  - ABDOMINAL PAIN UPPER [None]
  - DRUG INEFFECTIVE [None]
  - EPISTAXIS [None]
  - EYE HAEMORRHAGE [None]
  - GINGIVAL BLEEDING [None]
  - HAEMORRHAGE [None]
  - INJURY ASPHYXIATION [None]
